FAERS Safety Report 7612830-3 (Version None)
Quarter: 2011Q3

REPORT INFORMATION
  Report Type: 
  Country: None (occurrence: None)
  Receive Date: 20110701
  Receipt Date: 20100610
  Transmission Date: 20111222
  Serious: Yes (Other)
  Sender: FDA-Public Use
  Company Number: 237504USA

PATIENT
  Age: 48 Year
  Sex: Male

DRUGS (4)
  1. GEMTUZUMAB [Suspect]
     Indication: ACUTE MYELOID LEUKAEMIA
  2. FLUDARABINE PHOSPHATE [Suspect]
     Indication: ACUTE MYELOID LEUKAEMIA
  3. IDARUBICIN HCL [Suspect]
     Indication: ACUTE MYELOID LEUKAEMIA
  4. CYTARABINE [Suspect]
     Indication: ACUTE MYELOID LEUKAEMIA

REACTIONS (2)
  - NO THERAPEUTIC RESPONSE [None]
  - DISEASE PROGRESSION [None]
